FAERS Safety Report 5556223-1 (Version None)
Quarter: 2007Q4

REPORT INFORMATION
  Report Type: 
  Country: None (occurrence: None)
  Receive Date: 20071205
  Receipt Date: 20071130
  Transmission Date: 20080405
  Serious: Yes (Hospitalization)
  Sender: FDA-Public Use
  Company Number: WAES 0711AUS00010

PATIENT
  Age: 44 Year
  Sex: Male
  Weight: 71.6683 kg

DRUGS (3)
  1. ISENTRESS [Suspect]
     Indication: HIV INFECTION
     Dosage: 400 MG, BID;PO
     Route: 048
     Dates: start: 20070923
  2. DARUNAVIR UNK [Suspect]
     Indication: HIV INFECTION
     Dosage: 600 MG, BID; PO
     Route: 048
     Dates: start: 20070923
  3. RITONAVIR UNK [Suspect]
     Indication: HIV INFECTION
     Dosage: 100 MG, BID; PO
     Route: 048
     Dates: start: 20070923

REACTIONS (1)
  - MYOCARDIAL INFARCTION [None]
